FAERS Safety Report 11213549 (Version 1)
Quarter: 2015Q2

REPORT INFORMATION
  Report Type: Spontaneous
  Country: US (occurrence: US)
  Receive Date: 20150623
  Receipt Date: 20150623
  Transmission Date: 20150821
  Serious: No
  Sender: FDA-Public Use
  Company Number: US-TEVA-571718USA

PATIENT
  Sex: Female

DRUGS (1)
  1. NUVIGIL [Suspect]
     Active Substance: ARMODAFINIL
     Indication: PRODUCT USED FOR UNKNOWN INDICATION
     Dosage: INTERMITTENTLY THEN  TAKING IT EVERYDAY

REACTIONS (7)
  - Anxiety [Unknown]
  - Headache [Unknown]
  - Energy increased [Unknown]
  - Restlessness [Unknown]
  - Tremor [Unknown]
  - Nausea [Unknown]
  - Insomnia [Unknown]
